FAERS Safety Report 12221610 (Version 3)
Quarter: 2016Q3

REPORT INFORMATION
  Report Type: Report from Study
  Country: DE (occurrence: DE)
  Receive Date: 20160330
  Receipt Date: 20160712
  Transmission Date: 20161109
  Serious: Yes (Death, Life-Threatening)
  Sender: FDA-Public Use
  Company Number: DE-BAYER-2016-054786

PATIENT
  Age: 80 Year
  Sex: Male
  Weight: 98 kg

DRUGS (15)
  1. XOFIGO [Suspect]
     Active Substance: RADIUM RA-223 DICHLORIDE
     Indication: PROSTATE CANCER STAGE IV
     Dosage: 4.95 MBQ
     Route: 042
     Dates: start: 20160202, end: 20160202
  2. ASPIRIN. [Concomitant]
     Active Substance: ASPIRIN
     Dosage: UNK
     Dates: start: 20131016
  3. FENTANYL CITRATE. [Concomitant]
     Active Substance: FENTANYL CITRATE
     Dosage: 100 ?G, PRN
     Route: 048
     Dates: start: 201409, end: 201501
  4. ALLOPURINOL. [Concomitant]
     Active Substance: ALLOPURINOL
     Dosage: DAILY DOSE 100MG
     Dates: start: 2005
  5. IDEOS [Concomitant]
     Active Substance: CALCIUM CARBONATE\CHOLECALCIFEROL
     Dosage: DAILY DOSE 1 DF
     Dates: start: 20100307, end: 2016
  6. METFORMIN [Concomitant]
     Active Substance: METFORMIN HYDROCHLORIDE
     Dosage: 1000 MG, BID
     Dates: start: 2010
  7. PREDNISOLON [Concomitant]
     Active Substance: PREDNISOLONE
     Dosage: DAILY DOSE 5MG
     Dates: start: 2015
  8. TRAMADOL. [Concomitant]
     Active Substance: TRAMADOL
     Dosage: 20 GTT, PRN
     Route: 048
     Dates: start: 20151111
  9. LYRICA [Concomitant]
     Active Substance: PREGABALIN
     Dosage: 75 MG, BID
     Dates: start: 2013
  10. XOFIGO [Suspect]
     Active Substance: RADIUM RA-223 DICHLORIDE
     Indication: METASTASES TO BONE
     Dosage: 4.85MBQ
     Dates: start: 20160105, end: 20160105
  11. XOFIGO [Suspect]
     Active Substance: RADIUM RA-223 DICHLORIDE
     Indication: PROSTATE CANCER STAGE IV
     Dosage: 4.9 MBQ
     Route: 042
     Dates: start: 20151208, end: 20151208
  12. XOFIGO [Suspect]
     Active Substance: RADIUM RA-223 DICHLORIDE
     Indication: PROSTATE CANCER STAGE IV
     Dosage: 4.85 MBQ
     Dates: start: 20160301, end: 20160301
  13. TILIDIN [Concomitant]
     Active Substance: NALOXONE HYDROCHLORIDE\TILIDINE HYDROCHLORIDE
     Dosage: 100 MG, PRN
     Route: 048
     Dates: start: 201510, end: 20160206
  14. PANTOPRAZOLE [Concomitant]
     Active Substance: PANTOPRAZOLE SODIUM
     Dosage: DAILY DOSE 40MG
     Dates: start: 2013
  15. IMODIUM [Concomitant]
     Active Substance: LOPERAMIDE HYDROCHLORIDE
     Dosage: DAILY DOSE 2-4 X 2MG
     Dates: start: 20151213, end: 20151216

REACTIONS (3)
  - Pancytopenia [Fatal]
  - Asthenia [Not Recovered/Not Resolved]
  - Hypercalcaemia [Not Recovered/Not Resolved]

NARRATIVE: CASE EVENT DATE: 20160306
